FAERS Safety Report 9331347 (Version 1)
Quarter: 2013Q2

REPORT INFORMATION
  Report Type: Spontaneous
  Country: US (occurrence: US)
  Receive Date: 20130605
  Receipt Date: 20130605
  Transmission Date: 20140414
  Serious: No
  Sender: FDA-Public Use
  Company Number: US-TARO-2013P1000176

PATIENT
  Age: 22 Month
  Sex: Female

DRUGS (1)
  1. CETIRIZINE HCL ORAL SOLUTION ALLERGY 1 MG/ML OTC [Suspect]
     Indication: NASOPHARYNGITIS
     Route: 048
     Dates: start: 20121228, end: 20130102

REACTIONS (4)
  - Pyrexia [Recovered/Resolved]
  - Irritability [Recovered/Resolved]
  - Fatigue [Recovered/Resolved]
  - Drug ineffective for unapproved indication [Not Recovered/Not Resolved]
